FAERS Safety Report 23230269 (Version 1)
Quarter: 2023Q4

REPORT INFORMATION
  Report Type: Spontaneous
  Country: TW (occurrence: TW)
  Receive Date: 20231127
  Receipt Date: 20231127
  Transmission Date: 20240110
  Serious: Yes (Other)
  Sender: FDA-Public Use
  Company Number: TW-DSPHARMA-2023SMP018505

PATIENT

DRUGS (7)
  1. LATUDA [Interacting]
     Active Substance: LURASIDONE HYDROCHLORIDE
     Indication: Depression
     Dosage: 40 MG QNPC
     Route: 048
     Dates: start: 20220803, end: 20221220
  2. LATUDA [Interacting]
     Active Substance: LURASIDONE HYDROCHLORIDE
     Dosage: 80 MG QNPC
     Route: 048
     Dates: start: 20221221, end: 20230117
  3. LATUDA [Interacting]
     Active Substance: LURASIDONE HYDROCHLORIDE
     Dosage: 40 MG QNPC
     Route: 048
     Dates: start: 20230118
  4. FLUPENTIXOL DIHYDROCHLORIDE\MELITRACEN HYDROCHLORIDE [Suspect]
     Active Substance: FLUPENTIXOL DIHYDROCHLORIDE\MELITRACEN HYDROCHLORIDE
     Dosage: UNK
     Route: 065
  5. XANAX [Concomitant]
     Active Substance: ALPRAZOLAM
     Dosage: UNK
     Route: 065
  6. VENLAFAXINE HYDROCHLORIDE [Concomitant]
     Active Substance: VENLAFAXINE HYDROCHLORIDE
     Dosage: UNK
     Route: 065
  7. IMOVANE [Concomitant]
     Active Substance: ZOPICLONE
     Dosage: UNK
     Route: 065

REACTIONS (3)
  - Extrapyramidal disorder [Recovered/Resolved]
  - Drug interaction [Recovered/Resolved]
  - Product use in unapproved indication [Unknown]

NARRATIVE: CASE EVENT DATE: 20220803
